FAERS Safety Report 13013047 (Version 1)
Quarter: 2016Q4

REPORT INFORMATION
  Report Type: Spontaneous
  Country: US (occurrence: US)
  Receive Date: 20161208
  Receipt Date: 20161208
  Transmission Date: 20170207
  Serious: Yes (Other)
  Sender: FDA-Public Use
  Company Number: None

PATIENT
  Age: 58 Year
  Sex: Female

DRUGS (3)
  1. HCTZ [Concomitant]
     Active Substance: HYDROCHLOROTHIAZIDE
  2. ST. JOHN WORT [Concomitant]
  3. TRAMADOL 50MG [Suspect]
     Active Substance: TRAMADOL
     Indication: NECK PAIN
     Dosage: ?          QUANTITY:1 TABLET(S); EVERY 12 HOURS?
     Route: 048

REACTIONS (6)
  - Back pain [None]
  - Tympanic membrane perforation [None]
  - Dizziness [None]
  - Hypertension [None]
  - Hyperhidrosis [None]
  - Ear pain [None]

NARRATIVE: CASE EVENT DATE: 20161029
